FAERS Safety Report 25051838 (Version 2)
Quarter: 2025Q1

REPORT INFORMATION
  Report Type: Report from Study
  Country: US (occurrence: US)
  Receive Date: 20250307
  Receipt Date: 20250314
  Transmission Date: 20250408
  Serious: Yes (Other)
  Sender: TAIHO ONCOLOGY INC
  Company Number: US-TAIHOP-2025-001586

PATIENT
  Age: 56 Year
  Sex: Female

DRUGS (1)
  1. LONSURF [Suspect]
     Active Substance: TIPIRACIL HYDROCHLORIDE\TRIFLURIDINE
     Indication: Hepatic cancer
     Dosage: FORM STRENGTH: 15MG AND 20MG?DOSE AND CYCLE UNKNOWN
     Route: 048
     Dates: start: 20241106, end: 20250123

REACTIONS (8)
  - Hypersensitivity [Unknown]
  - Fatigue [Recovered/Resolved]
  - Neuropathy peripheral [Unknown]
  - Abdominal pain upper [Unknown]
  - Flatulence [Unknown]
  - Oral pain [Unknown]
  - Skin lesion [Unknown]
  - Product use in unapproved indication [Unknown]

NARRATIVE: CASE EVENT DATE: 20250110
